FAERS Safety Report 6621530-8 (Version None)
Quarter: 2010Q1

REPORT INFORMATION
  Report Type: 
  Country: None (occurrence: None)
  Receive Date: 20100223
  Receipt Date: 20091228
  Transmission Date: 20100710
  Serious: Yes (Other)
  Sender: FDA-Public Use
  Company Number: 003897

PATIENT
  Sex: Female
  Weight: 72.5755 kg

DRUGS (5)
  1. CIMZIA [Suspect]
     Dosage: (400 MG EVERY 28 DAYS SUBCUTANEOUS)
     Route: 058
  2. METHOTREXATE [Concomitant]
  3. PREDNISONE [Concomitant]
  4. FOLIC ACID [Concomitant]
  5. ARTHROTEC [Concomitant]

REACTIONS (3)
  - GAIT DISTURBANCE [None]
  - INCORRECT ROUTE OF DRUG ADMINISTRATION [None]
  - PAIN [None]
